FAERS Safety Report 5787640-2 (Version None)
Quarter: 2008Q2

REPORT INFORMATION
  Report Type: 
  Country: None (occurrence: None)
  Receive Date: 20080625
  Receipt Date: 20080613
  Transmission Date: 20081010
  Serious: Yes (Hospitalization)
  Sender: FDA-Public Use
  Company Number: DE-JNJFOC-20080505064

PATIENT
  Sex: Male
  Weight: 63 kg

DRUGS (5)
  1. TMC125 [Suspect]
     Route: 048
  2. TMC125 [Suspect]
     Indication: HIV INFECTION
     Route: 048
  3. PREZISTA [Suspect]
     Indication: HIV INFECTION
     Route: 048
  4. TOREM [Suspect]
     Indication: DIURETIC THERAPY
  5. ALDACTONE [Suspect]
     Indication: DIURETIC THERAPY

REACTIONS (4)
  - GENERAL PHYSICAL HEALTH DETERIORATION [None]
  - HEPATIC CIRRHOSIS [None]
  - HYPONATRAEMIA [None]
  - HYPOVOLAEMIA [None]
